FAERS Safety Report 6859886-3 (Version None)
Quarter: 2010Q3

REPORT INFORMATION
  Report Type: 
  Country: None (occurrence: None)
  Receive Date: 20100720
  Receipt Date: 20100331
  Transmission Date: 20110219
  Serious: No
  Sender: FDA-Public Use
  Company Number: US-BAYER-201010195NA

PATIENT
  Sex: Male

DRUGS (5)
  1. KOGENATE FS [Suspect]
     Indication: PRODUCT USED FOR UNKNOWN INDICATION
     Dosage: AS USED: 3000 IU
     Dates: start: 20091101
  2. ADVATE [Concomitant]
  3. TEGRETOL [Concomitant]
     Dosage: TOTAL DAILY DOSE: 800 MG  UNIT DOSE: 200 MG
  4. ZONEGRAN [Concomitant]
     Dosage: TOTAL DAILY DOSE: 300 MG  UNIT DOSE: 100 MG
  5. ATENOLOL [Concomitant]
     Indication: HYPERTENSION
     Dosage: TOTAL DAILY DOSE: 50 MG  UNIT DOSE: 50 MG

REACTIONS (2)
  - INFUSION SITE PRURITUS [None]
  - PYREXIA [None]
